FAERS Safety Report 10015577 (Version 1)
Quarter: 2014Q1

REPORT INFORMATION
  Report Type: Spontaneous
  Country: GB (occurrence: GB)
  Receive Date: 20140317
  Receipt Date: 20140317
  Transmission Date: 20141002
  Serious: Yes (Hospitalization)
  Sender: FDA-Public Use
  Company Number: GB-ASTRAZENECA-2014SE17299

PATIENT
  Age: 32294 Day
  Sex: Male

DRUGS (3)
  1. BRILIQUE [Suspect]
     Route: 048
  2. VITAMIN B [Concomitant]
  3. ERYTHROMYCIN [Concomitant]

REACTIONS (2)
  - Dysphagia [Not Recovered/Not Resolved]
  - Haematemesis [Recovered/Resolved]
